FAERS Safety Report 16029808 (Version 1)
Quarter: 2019Q1

REPORT INFORMATION
  Report Type: Spontaneous
  Country: TR (occurrence: TR)
  Receive Date: 20190304
  Receipt Date: 20190304
  Transmission Date: 20190418
  Serious: Yes (Life-Threatening, Hospitalization, Other)
  Sender: FDA-Public Use
  Company Number: TR-ASTRAZENECA-2019SE31986

PATIENT
  Age: 40 Year
  Sex: Female
  Weight: 57 kg

DRUGS (1)
  1. FORZIGA [Suspect]
     Active Substance: DAPAGLIFLOZIN
     Indication: TYPE 1 DIABETES MELLITUS
     Dosage: 10.0MG UNKNOWN
     Route: 048
     Dates: start: 20181201, end: 201812

REACTIONS (5)
  - Euglycaemic diabetic ketoacidosis [Unknown]
  - Blood glucose abnormal [Unknown]
  - Ketoacidosis [Recovered/Resolved]
  - Nausea [Unknown]
  - Visual impairment [Unknown]

NARRATIVE: CASE EVENT DATE: 20181218
